FAERS Safety Report 15456870 (Version 2)
Quarter: 2018Q4

REPORT INFORMATION
  Report Type: Spontaneous
  Country: US (occurrence: US)
  Receive Date: 20181002
  Receipt Date: 20181109
  Transmission Date: 20190204
  Serious: No
  Sender: FDA-Public Use
  Company Number: US-PFIZER INC-2017373574

PATIENT
  Age: 53 Year
  Sex: Female

DRUGS (74)
  1. ZOLPIDEM TARTRATE. [Concomitant]
     Active Substance: ZOLPIDEM TARTRATE
     Dosage: 10 MG, 1X/DAY (AT BEDTIME)
     Route: 048
     Dates: start: 20140710, end: 20180326
  2. LYRICA [Suspect]
     Active Substance: PREGABALIN
     Dosage: 150 MG, 2X/DAY
     Route: 048
     Dates: start: 20170809
  3. ASPIRIN [ACETYLSALICYLIC ACID] [Concomitant]
     Active Substance: ASPIRIN
     Indication: ATRIAL FIBRILLATION
     Dosage: 81 MG, DAILY
     Route: 048
     Dates: start: 20170503
  4. CYMBALTA [Concomitant]
     Active Substance: DULOXETINE HYDROCHLORIDE
     Dosage: 60 MG, DAILY
     Route: 048
     Dates: start: 20170503
  5. CYMBALTA [Concomitant]
     Active Substance: DULOXETINE HYDROCHLORIDE
     Dosage: 60 MG, UNK
     Route: 048
     Dates: start: 20180529, end: 20180828
  6. DIFLUCAN [Concomitant]
     Active Substance: FLUCONAZOLE
     Dosage: 150 MG, DAILY
     Route: 048
     Dates: start: 20171016, end: 20180326
  7. FLONASE [Concomitant]
     Active Substance: FLUTICASONE PROPIONATE
     Indication: HYPERSENSITIVITY
     Dosage: UNK UNK, AS NEEDED (USE 1 SPRAY IN EACH NOSTRIL TWICE DAILY)
     Route: 045
     Dates: start: 20170503, end: 20171016
  8. OXYBUTYNIN CHLORIDE. [Concomitant]
     Active Substance: OXYBUTYNIN CHLORIDE
     Dosage: 5 MG, 3X/DAY
     Route: 048
     Dates: start: 20180529
  9. WARFARIN SODIUM. [Concomitant]
     Active Substance: WARFARIN SODIUM
     Dosage: 3 MG, DAILY (1 TABLET EACH PM ALONG WITH A 5 MG ORAL TABLET)
     Route: 048
     Dates: start: 20170614
  10. CIPROFLOXACIN HCL [Concomitant]
     Active Substance: CIPROFLOXACIN HYDROCHLORIDE
     Dosage: 500 MG, 2X/DAY(EVERY 12 HOURS DAILY)
     Route: 048
     Dates: start: 20171030, end: 20180326
  11. COREG [Concomitant]
     Active Substance: CARVEDILOL
     Dosage: 3.125 MG, 2X/DAY (WITH MORNING AND EVENING MEAL)
     Route: 048
     Dates: start: 20140710, end: 20170503
  12. LASIX [Concomitant]
     Active Substance: FUROSEMIDE
     Indication: CARDIAC FAILURE ACUTE
     Dosage: 80 MG, 1X/DAY
     Route: 048
     Dates: start: 20180529, end: 20180828
  13. POTASSIUM CHLORIDE. [Concomitant]
     Active Substance: POTASSIUM CHLORIDE
     Dosage: 20 MEQ, 4X/DAY
     Route: 048
     Dates: start: 20141020, end: 20180312
  14. DULOXETINE HCL [Concomitant]
     Active Substance: DULOXETINE HYDROCHLORIDE
     Dosage: 60 MG, DAILY
  15. LYRICA [Suspect]
     Active Substance: PREGABALIN
     Dosage: 150 MG, 2X/DAY
     Route: 048
     Dates: start: 20180119
  16. COLACE [Concomitant]
     Active Substance: DOCUSATE SODIUM
     Dosage: 100 MG, 3X/DAY
     Route: 048
     Dates: start: 20180828
  17. METOLAZONE. [Concomitant]
     Active Substance: METOLAZONE
     Dosage: 5 MG, DAILY
     Route: 048
     Dates: start: 20170503
  18. SOMA [Concomitant]
     Active Substance: CARISOPRODOL
     Dosage: 350 MG, AS NEEDED (TAKE 1 ONE TABLET EVERY 12 HOURS)
     Route: 048
     Dates: start: 20171031, end: 20171130
  19. CARAFATE [Concomitant]
     Active Substance: SUCRALFATE
     Dosage: 1 G, 2X/DAY (TAKE 1 TABLET EVERY 12 HOURS DAILY)
     Route: 048
     Dates: start: 20180125
  20. TIZANIDINE HCL [Concomitant]
     Active Substance: TIZANIDINE HYDROCHLORIDE
     Indication: NEUROPATHY PERIPHERAL
     Dosage: 2 MG, UNK
     Route: 048
     Dates: start: 20180529, end: 20180828
  21. VESICARE [Concomitant]
     Active Substance: SOLIFENACIN SUCCINATE
     Dosage: 10 MG, DAILY
     Route: 048
     Dates: start: 20180529, end: 20180828
  22. COLACE [Concomitant]
     Active Substance: DOCUSATE SODIUM
     Dosage: 100 MG, 2X/DAY
     Route: 048
     Dates: start: 20140710, end: 20170503
  23. ESTRACE [Concomitant]
     Active Substance: ESTRADIOL
     Dosage: 0.1 UNK, UNK
     Dates: start: 20180529
  24. FLUTICASONE PROPIONATE. [Concomitant]
     Active Substance: FLUTICASONE PROPIONATE
     Dosage: 100 UG, 1X/DAY (USE 1 TO 2 SPRAYS)
     Route: 045
     Dates: start: 20171016
  25. SOMA [Concomitant]
     Active Substance: CARISOPRODOL
     Dosage: 350 MG, 2X/DAY
     Route: 048
     Dates: start: 20180828
  26. ASPIRIN [ACETYLSALICYLIC ACID] [Concomitant]
     Active Substance: ASPIRIN
     Dosage: 81 MG, UNK
     Route: 048
     Dates: start: 20180529, end: 20180828
  27. CARISOPRODOL. [Concomitant]
     Active Substance: CARISOPRODOL
     Dosage: 250 MG, 3X/DAY
     Route: 048
     Dates: start: 20171027, end: 20171031
  28. CIPROFLOXACIN HCL [Concomitant]
     Active Substance: CIPROFLOXACIN HYDROCHLORIDE
     Dosage: 250 MG, 2X/DAY (EVERY 12 HOURS DAILY)
     Route: 048
     Dates: start: 20171030, end: 20171030
  29. CYCLOBENZAPRINE HCL [Concomitant]
     Active Substance: CYCLOBENZAPRINE HYDROCHLORIDE
  30. NEURONTIN [Concomitant]
     Active Substance: GABAPENTIN
     Dosage: 300 MG, 3X/DAY
     Route: 048
     Dates: start: 20140710, end: 20180326
  31. NORCO [Concomitant]
     Active Substance: ACETAMINOPHEN\HYDROCODONE BITARTRATE
     Indication: PAIN
     Dosage: UNK UNK, AS NEEDED (HYDROCODONE: 10 MG-ACETAMINOPHEN: 325 MG)/(TAKE ONE TABLET Q12HR PRN)
     Route: 048
     Dates: start: 20170503, end: 20180326
  32. MORPHINE SULFATE. [Concomitant]
     Active Substance: MORPHINE SULFATE
     Dosage: 30 MG, UNK
     Route: 048
     Dates: start: 20180529, end: 20180828
  33. SUCRALFATE. [Concomitant]
     Active Substance: SUCRALFATE
     Indication: GASTROOESOPHAGEAL REFLUX DISEASE
     Dosage: 1 G, 2X/DAY
     Route: 048
     Dates: start: 20180125
  34. VALIUM [Concomitant]
     Active Substance: DIAZEPAM
     Dosage: 2 MG, 2X/DAY
     Route: 048
     Dates: start: 20180529
  35. VALIUM [Concomitant]
     Active Substance: DIAZEPAM
     Dosage: 2 MG, 2X/DAY
     Route: 048
     Dates: start: 20140710, end: 20180828
  36. MORPHINE SULFATE. [Concomitant]
     Active Substance: MORPHINE SULFATE
     Dosage: 15 MG, UNK
     Route: 048
     Dates: start: 20180529, end: 20180828
  37. CARISOPRODOL. [Concomitant]
     Active Substance: CARISOPRODOL
     Indication: PAIN
     Dosage: 250 MG, AS NEEDED (THREE TIMES DAILY)
     Route: 048
     Dates: start: 20171030, end: 20171030
  38. MYRBETRIQ [Concomitant]
     Active Substance: MIRABEGRON
     Dosage: 50 MG, UNK
     Route: 048
     Dates: start: 20180501, end: 20180501
  39. LYRICA [Suspect]
     Active Substance: PREGABALIN
     Indication: FIBROMYALGIA
     Dosage: 75 MG, 2X/DAY
     Route: 048
     Dates: start: 20170809
  40. BIOTIN [Concomitant]
     Active Substance: BIOTIN
     Dosage: 10 MG, 1X/DAY
     Dates: start: 20170503, end: 20180326
  41. DIFLUCAN [Concomitant]
     Active Substance: FLUCONAZOLE
     Dosage: 150 MG, UNK
     Route: 048
     Dates: start: 20140710
  42. DIFLUCAN [Concomitant]
     Active Substance: FLUCONAZOLE
     Dosage: 150 MG, UNK
     Route: 048
     Dates: start: 20180529, end: 20180828
  43. FLONASE [Concomitant]
     Active Substance: FLUTICASONE PROPIONATE
     Dosage: UNK (50UG/ACT)
     Route: 045
     Dates: start: 20180529, end: 20180828
  44. FUROSEMIDE. [Concomitant]
     Active Substance: FUROSEMIDE
     Dosage: 80 MG, DAILY
     Route: 048
     Dates: start: 20140710
  45. MORPHINE SULFATE. [Concomitant]
     Active Substance: MORPHINE SULFATE
     Indication: PAIN
     Dosage: 15 MG, AS NEEDED (TAKE EVERY 12 HOURS)
     Route: 048
     Dates: start: 20180326
  46. CARAFATE [Concomitant]
     Active Substance: SUCRALFATE
     Dosage: 10 ML, 4X/DAY
     Route: 048
     Dates: start: 20180124, end: 20180125
  47. HYDROCODONE-IBUPROFEN [Concomitant]
     Active Substance: HYDROCODONE BITARTRATE\IBUPROFEN
     Indication: PAIN
     Dosage: UNK UNK, AS NEEDED (HYDROCODONE 10 MG-IBUPROFEN 200 MG )(TAKE ONE TABLET Q12HR PRN)
     Route: 048
     Dates: start: 20180124, end: 20180130
  48. MYRBETRIQ [Concomitant]
     Active Substance: MIRABEGRON
     Dosage: 50 MG, DAILY
     Route: 048
     Dates: start: 20180508, end: 20180828
  49. PRENATAL [FERROUS SULFATE;FOLIC ACID;ZINC] [Concomitant]
     Dosage: 1 DF, DAILY
     Route: 048
     Dates: start: 20140710, end: 20180326
  50. TIZANIDINE HCL [Concomitant]
     Active Substance: TIZANIDINE HYDROCHLORIDE
     Indication: NEUROPATHY PERIPHERAL
     Dosage: 4 MG, DAILY (2 CAPSULES DAILY)
     Route: 048
     Dates: start: 20170503, end: 20180828
  51. FLONASE [Concomitant]
     Active Substance: FLUTICASONE PROPIONATE
     Dosage: 50 UG, UNK
     Route: 045
     Dates: start: 20180529
  52. KLOR-CON [Concomitant]
     Active Substance: POTASSIUM CHLORIDE
     Indication: HYPOKALAEMIA
     Dosage: 20 MEQ, 4X/DAY
     Route: 048
     Dates: start: 20180312
  53. MORPHINE SULFATE. [Concomitant]
     Active Substance: MORPHINE SULFATE
     Indication: FIBROMYALGIA
     Dosage: 30 MG, 2X/DAY
     Route: 048
     Dates: start: 20170511
  54. PERSANTINE [Concomitant]
     Active Substance: DIPYRIDAMOLE
     Dosage: 75 MG, 1X/DAY (AT BEDTIME)
     Dates: start: 20180529
  55. PRENATAL [ASCORBIC ACID;CALCIUM PHOSPHATE;CYANOCOBALAMIN;ERGOCALCIFERO [Concomitant]
     Dosage: UNK
     Dates: start: 20180529
  56. ZAROXOLYN [Concomitant]
     Active Substance: METOLAZONE
     Dosage: 5 MG, 1X/DAY (BEDTIME)
     Dates: start: 20180529
  57. COUMADIN [Concomitant]
     Active Substance: WARFARIN SODIUM
     Dosage: 7.5 MG, UNK
     Route: 048
     Dates: start: 20180529, end: 20180828
  58. LOMOTIL [ATROPINE SULFATE;DIPHENOXYLATE HYDROCHLORIDE] [Concomitant]
     Indication: DIARRHOEA
     Dosage: 1 DF, AS NEEDED (4 TIMES DAILY)(ATROPINE: 0.025MG/DIPHENOXYLATE: 2.5 MG)
     Route: 048
     Dates: start: 20170710, end: 20180326
  59. ESTRIOL [Concomitant]
     Active Substance: ESTRIOL
     Dosage: UNK (EVERY MONDAY, WEDNESDAY AND FRIDAY)
     Route: 066
     Dates: start: 20180529, end: 20180828
  60. MOBIC [Concomitant]
     Active Substance: MELOXICAM
     Dosage: 15 MG, AS NEEDED (TAKE 1 TABLET DAILY)
     Route: 048
     Dates: start: 20170928, end: 20180326
  61. ONDANSETRON HCL [Concomitant]
     Active Substance: ONDANSETRON HYDROCHLORIDE
     Indication: NAUSEA
     Dosage: 4 MG, AS NEEDED (PRN)/(Q6 HOURS)
     Route: 048
     Dates: start: 20170809, end: 20180326
  62. TRAZODONE HYDROCHLORIDE. [Concomitant]
     Active Substance: TRAZODONE HYDROCHLORIDE
     Dosage: 50 MG, AS NEEDED (AT BEDTIME)
     Route: 048
     Dates: start: 20170615, end: 20180326
  63. BIOTIN [Concomitant]
     Active Substance: BIOTIN
     Dosage: 1 MG, 1X/DAY (1 CAPSULE AT BEDTIME)
     Route: 048
     Dates: start: 20180529
  64. MAGNESIUM [Concomitant]
     Active Substance: MAGNESIUM
     Dosage: 2000 MG, DAILY (1 TABLET 5 TIMES A DAY)
     Route: 048
     Dates: start: 20180529
  65. ZOFRAN [ONDANSETRON] [Concomitant]
     Dosage: 4 MG, AS NEEDED (EVERY 6 HOURS)
     Route: 048
     Dates: start: 20180720
  66. WARFARIN SODIUM. [Concomitant]
     Active Substance: WARFARIN SODIUM
     Dosage: 5 MG, DAILY (3 MG, DAILY (1 TABLET EACH PM ALONG WITH A 3 MG ORAL TABLET))
     Route: 048
     Dates: start: 20170614
  67. ASPIRIN [ACETYLSALICYLIC ACID] [Concomitant]
     Active Substance: ASPIRIN
     Indication: ATRIAL FIBRILLATION
     Dosage: 81 MG, DAILY
     Route: 048
     Dates: start: 20140710, end: 20170503
  68. CORDARONE [Concomitant]
     Active Substance: AMIODARONE HYDROCHLORIDE
     Dosage: 200 MG, DAILY
     Dates: start: 20140710, end: 20170503
  69. COUMADIN [Concomitant]
     Active Substance: WARFARIN SODIUM
     Dosage: 5 MG, DAILY (ALONG WITH A 5 MG TABLET DAILY)
     Route: 048
     Dates: start: 20170503, end: 20171127
  70. FISH OIL/OMEGA-3 FATTY ACIDS/OMEGA-6 FATTY ACIDS [Concomitant]
     Dosage: 1 DF, DAILY
     Route: 048
     Dates: start: 20170503, end: 20180326
  71. DIPYRIDAMOLE. [Concomitant]
     Active Substance: DIPYRIDAMOLE
     Indication: DEEP VEIN THROMBOSIS
     Dosage: 75 MG, 1X/DAY
     Route: 048
     Dates: start: 20170503
  72. TRAZODONE HYDROCHLORIDE. [Concomitant]
     Active Substance: TRAZODONE HYDROCHLORIDE
     Dosage: 50 MG, 1X/DAY (BEDTIME)
     Route: 048
     Dates: start: 20180529
  73. WARFARIN SODIUM. [Concomitant]
     Active Substance: WARFARIN SODIUM
     Indication: ATRIAL FIBRILLATION
     Dosage: 1MG, UNK
     Route: 048
     Dates: start: 20170505
  74. MAGNESIUM [Concomitant]
     Active Substance: MAGNESIUM
     Dosage: 2000 MG, DAILY (4 CAPSULE DAILY)
     Route: 048
     Dates: start: 20170503, end: 20180326

REACTIONS (1)
  - Hypoaesthesia [Unknown]
